FAERS Safety Report 6976963-7 (Version None)
Quarter: 2010Q3

REPORT INFORMATION
  Report Type: 
  Country: None (occurrence: None)
  Receive Date: 20100910
  Receipt Date: 20100901
  Transmission Date: 20110219
  Serious: Yes (Death, Hospitalization, Other)
  Sender: FDA-Public Use
  Company Number: DE-ROCHE-691675

PATIENT
  Sex: Male
  Weight: 80 kg

DRUGS (3)
  1. XELODA [Suspect]
     Dosage: BETWEEN 800 AND 1200 MG/M2 TWICE/DAY.
     Route: 048
     Dates: start: 20090629, end: 20100320
  2. CETUXIMAB [Suspect]
     Route: 065
     Dates: start: 20100301
  3. ZOMETA [Concomitant]
     Dates: start: 20090801

REACTIONS (4)
  - ILEUS [None]
  - MALIGNANT NEOPLASM PROGRESSION [None]
  - RECTAL CANCER [None]
  - RECTAL HAEMORRHAGE [None]
